FAERS Safety Report 4601047-2 (Version None)
Quarter: 2005Q1

REPORT INFORMATION
  Report Type: 
  Country: None (occurrence: None)
  Receive Date: 20050307
  Receipt Date: 20050307
  Transmission Date: 20050727
  Serious: Yes (Other)
  Sender: FDA-Public Use
  Company Number: None

PATIENT
  Age: 15 Year
  Sex: Female
  Weight: 57.6068 kg

DRUGS (2)
  1. ZYPREXA [Suspect]
     Indication: PSYCHOTIC DISORDER
     Dosage: 10MG   PO  QHS;   2.5MG   PO  QAM
     Route: 048
     Dates: start: 20050118, end: 20050216
  2. BENADRYL [Concomitant]

REACTIONS (1)
  - WEIGHT INCREASED [None]
